FAERS Safety Report 11323555 (Version 1)
Quarter: 2015Q3

REPORT INFORMATION
  Report Type: Spontaneous
  Country: US (occurrence: US)
  Receive Date: 20150730
  Receipt Date: 20150730
  Transmission Date: 20151125
  Serious: Yes (Hospitalization, Other)
  Sender: FDA-Public Use
  Company Number: US-APOTEX-2014AP002931

PATIENT
  Age: 35 Year
  Sex: Male

DRUGS (6)
  1. AMLODIPINE BESYLATE. [Suspect]
     Active Substance: AMLODIPINE BESYLATE
     Indication: INTENTIONAL OVERDOSE
     Dosage: 150 MG, UNKNOWN
     Route: 048
  2. INSULIN [Concomitant]
     Active Substance: INSULIN NOS
     Indication: TYPE 1 DIABETES MELLITUS
     Dosage: INSULIN INFUSION PUMP
     Route: 058
  3. VERAPAMIL HYDROCHLORIDE. [Suspect]
     Active Substance: VERAPAMIL HYDROCHLORIDE
     Indication: INTENTIONAL OVERDOSE
     Dosage: 57 X 180MG TABLETS (10.26G)
     Route: 048
  4. METOPROLOL [Suspect]
     Active Substance: METOPROLOL
     Indication: INTENTIONAL OVERDOSE
     Dosage: 47 X 25MG TABLETS (1.18G)
     Route: 048
  5. INSULIN [Concomitant]
     Active Substance: INSULIN NOS
     Dosage: 1UNIT/KG (83 UNITS)
     Route: 040
  6. INSULIN [Concomitant]
     Active Substance: INSULIN NOS
     Dosage: 1 ?G/KG/H (80 UNITS/H)
     Route: 065

REACTIONS (4)
  - Cardiogenic shock [Recovered/Resolved]
  - Suicide attempt [Recovered/Resolved]
  - Acute kidney injury [Recovered/Resolved]
  - Intentional overdose [Recovered/Resolved]
